FAERS Safety Report 5441560-1 (Version None)
Quarter: 2007Q3

REPORT INFORMATION
  Report Type: 
  Country: None (occurrence: None)
  Receive Date: 20070904
  Receipt Date: 20070823
  Transmission Date: 20080115
  Serious: Yes (Other)
  Sender: FDA-Public Use
  Company Number: DE-ELI_LILLY_AND_COMPANY-DE200708005272

PATIENT
  Age: 51 Year
  Sex: Male

DRUGS (4)
  1. OLANZAPINE [Suspect]
     Indication: SCHIZOPHRENIA
     Dosage: UNK, UNKNOWN
     Route: 065
  2. OLANZAPINE [Suspect]
     Dosage: 25 MG, UNKNOWN
     Route: 065
     Dates: start: 20050101
  3. OLANZAPINE [Suspect]
     Dosage: 30 MG, UNKNOWN
     Route: 065
     Dates: start: 20060101
  4. ORAL ANTIDIABETICS [Concomitant]
     Dosage: UNK, UNKNOWN
     Route: 065

REACTIONS (2)
  - ARRHYTHMIA [None]
  - DIABETES MELLITUS [None]
